FAERS Safety Report 8039414-X (Version None)
Quarter: 2012Q1

REPORT INFORMATION
  Report Type: 
  Country: None (occurrence: None)
  Receive Date: 20120111
  Receipt Date: 20111214
  Transmission Date: 20120608
  Serious: No
  Sender: FDA-Public Use
  Company Number: US-AMGEN-USASP2011050919

PATIENT
  Age: 68 Year
  Sex: Female
  Weight: 102.4 kg

DRUGS (4)
  1. TREXALL [Concomitant]
     Indication: ARTHRITIS
     Dosage: 10 MG, QWK
     Route: 048
     Dates: start: 20041111
  2. ENBREL [Suspect]
     Indication: RHEUMATOID ARTHRITIS
     Dosage: 50 MG, QWK
     Dates: start: 20080418
  3. ALENDRONATE SODIUM [Concomitant]
     Indication: OSTEOPOROSIS
     Dosage: 70 MG, QWK
     Dates: start: 20100112
  4. FOLIC ACID [Concomitant]
     Indication: PROPHYLAXIS
     Dosage: 1 MG, QD
     Route: 048
     Dates: start: 20041111

REACTIONS (2)
  - PAIN IN EXTREMITY [None]
  - SOMNOLENCE [None]
